FAERS Safety Report 14362981 (Version 4)
Quarter: 2018Q1

REPORT INFORMATION
  Report Type: Spontaneous
  Country: US (occurrence: US)
  Receive Date: 20180108
  Receipt Date: 20180315
  Transmission Date: 20180509
  Serious: Yes (Other)
  Sender: FDA-Public Use
  Company Number: PHEH2018US000877

PATIENT
  Age: 23 Year
  Sex: Female
  Weight: 81.64 kg

DRUGS (2)
  1. ZOFRAN [Suspect]
     Active Substance: ONDANSETRON HYDROCHLORIDE
     Indication: VOMITING IN PREGNANCY
     Dosage: UNK UNK, PRN
     Route: 048
     Dates: start: 2003, end: 2004
  2. ZOFRAN ODT [Suspect]
     Active Substance: ONDANSETRON HYDROCHLORIDE
     Indication: PRODUCT USED FOR UNKNOWN INDICATION
     Route: 048

REACTIONS (10)
  - Emotional distress [Unknown]
  - Injury [Unknown]
  - Urinary tract infection [Unknown]
  - Otitis media acute [Unknown]
  - Product use in unapproved indication [Unknown]
  - Hyperlipidaemia [Unknown]
  - Premature delivery [Unknown]
  - Abdominal pain [Unknown]
  - Depression [Unknown]
  - Maternal exposure during pregnancy [Unknown]

NARRATIVE: CASE EVENT DATE: 20040311
